FAERS Safety Report 22607039 (Version 2)
Quarter: 2023Q2

REPORT INFORMATION
  Report Type: Spontaneous
  Country: IN (occurrence: IN)
  Receive Date: 20230615
  Receipt Date: 20230627
  Transmission Date: 20230721
  Serious: Yes (Life-Threatening)
  Sender: FDA-Public Use
  Company Number: IN-BAUSCH-BL-2023-008943

PATIENT
  Age: 30 Year
  Sex: Male

DRUGS (3)
  1. PENICILLAMINE [Suspect]
     Active Substance: PENICILLAMINE
     Indication: Hepato-lenticular degeneration
     Dosage: 250 MG TWICE DAILY AS STARTING DOSE
     Route: 048
  2. PENICILLAMINE [Suspect]
     Active Substance: PENICILLAMINE
     Dosage: WHICH WAS GRADUALLY INCREASED TO 1 GM TWICE DAILY
     Route: 048
  3. ZINC [Concomitant]
     Active Substance: ZINC
     Indication: Hepato-lenticular degeneration
     Dosage: PENICILLAMINE ALONG WITH ORAL ZINC 50 MG TWICE DAILY
     Route: 048

REACTIONS (1)
  - SJS-TEN overlap [Recovered/Resolved]
